FAERS Safety Report 4777696-8 (Version None)
Quarter: 2005Q3

REPORT INFORMATION
  Report Type: 
  Country: None (occurrence: None)
  Receive Date: 20050923
  Receipt Date: 20050622
  Transmission Date: 20060218
  Serious: Yes (Hospitalization, Disabling)
  Sender: FDA-Public Use
  Company Number: US-MERCK-0506USA03314

PATIENT
  Age: 55 Year
  Sex: Male
  Weight: 87 kg

DRUGS (9)
  1. VIOXX [Suspect]
     Indication: ARTHRITIS
     Route: 048
     Dates: start: 20010101, end: 20030901
  2. DARVOCET-N 100 [Concomitant]
     Indication: ARTHRITIS
     Route: 065
  3. LIBRAX CAPSULES [Concomitant]
     Indication: IRRITABLE BOWEL SYNDROME
     Route: 065
  4. FOLIC ACID [Concomitant]
     Indication: ARTHRITIS
     Route: 065
  5. DIAZEPAM [Concomitant]
     Route: 065
  6. ALPRAZOLAM [Concomitant]
     Route: 065
  7. BUSPAR [Concomitant]
     Indication: SLEEP DISORDER
     Route: 065
  8. ASPIRIN [Concomitant]
     Indication: ARTHRITIS
     Route: 065
     Dates: start: 19900101
  9. ASPIRIN [Concomitant]
     Indication: HEADACHE
     Route: 065
     Dates: start: 19900101

REACTIONS (21)
  - ANXIETY DISORDER [None]
  - BLOOD CHOLESTEROL INCREASED [None]
  - BLOOD PRESSURE INCREASED [None]
  - BRONCHITIS ACUTE [None]
  - CARDIAC DISORDER [None]
  - CORONARY ARTERY ATHEROSCLEROSIS [None]
  - DEPRESSION [None]
  - DYSLIPIDAEMIA [None]
  - GASTRITIS [None]
  - HAEMATOMA [None]
  - HEART INJURY [None]
  - HYPERHIDROSIS [None]
  - HYPERTENSION [None]
  - IRRITABLE BOWEL SYNDROME [None]
  - MUSCLE SPASMS [None]
  - MYOCARDIAL INFARCTION [None]
  - OBESITY [None]
  - PYREXIA [None]
  - SINUS BRADYCARDIA [None]
  - ULCER [None]
  - VISUAL ACUITY REDUCED [None]
